FAERS Safety Report 7251084-7 (Version None)
Quarter: 2011Q1

REPORT INFORMATION
  Report Type: 
  Country: None (occurrence: None)
  Receive Date: 20110128
  Receipt Date: 20110117
  Transmission Date: 20110831
  Serious: Yes (Congenital Anomaly)
  Sender: FDA-Public Use
  Company Number: GB-MERCK-1101GBR00090B1

PATIENT
  Age: 1 Day
  Sex: Female
  Weight: 2 kg

DRUGS (5)
  1. TENOFOVIR DISOPROXIL FUMARATE [Suspect]
     Route: 064
     Dates: start: 20100601
  2. LOPINAVIR AND RITONAVIR [Suspect]
     Route: 064
     Dates: start: 20100601
  3. ISENTRESS [Suspect]
     Route: 064
     Dates: start: 20101201
  4. EMTRICITABINE [Concomitant]
     Route: 065
  5. EFAVIRENZ [Suspect]
     Route: 064
     Dates: start: 20100901

REACTIONS (3)
  - MATERNAL DRUGS AFFECTING FOETUS [None]
  - DRUG EXPOSURE DURING PREGNANCY [None]
  - SMALL FOR DATES BABY [None]
